FAERS Safety Report 19718537 (Version 1)
Quarter: 2021Q3

REPORT INFORMATION
  Report Type: Spontaneous
  Country: US (occurrence: US)
  Receive Date: 20210818
  Receipt Date: 20210818
  Transmission Date: 20211014
  Serious: Yes (Death, Other)
  Sender: FDA-Public Use
  Company Number: US-AMGEN-USASP2021124254

PATIENT
  Age: 63 Year
  Sex: Female

DRUGS (4)
  1. 5?FLUOROURACIL [FLUOROURACIL] [Concomitant]
     Active Substance: FLUOROURACIL
     Dosage: 400 MILLIGRAM/SQ. METER
  2. DOXORUBICIN [Concomitant]
     Active Substance: DOXORUBICIN
     Dosage: 15 MILLIGRAM/SQ. METER
  3. NEUPOGEN [Suspect]
     Active Substance: FILGRASTIM
     Indication: NEUTROPENIA
     Dosage: UNK
     Route: 065
  4. MITOMYCIN C [Concomitant]
     Active Substance: MITOMYCIN
     Dosage: 15 MILLIGRAM/SQ. METER

REACTIONS (4)
  - Mesenteric artery thrombosis [Unknown]
  - Thrombosis mesenteric vessel [Unknown]
  - Gastrointestinal necrosis [Unknown]
  - Death [Fatal]
